FAERS Safety Report 7250684-8 (Version None)
Quarter: 2011Q1

REPORT INFORMATION
  Report Type: 
  Country: None (occurrence: None)
  Receive Date: 20110121
  Receipt Date: 20110121
  Transmission Date: 20110831
  Serious: Yes (Life-Threatening, Other)
  Sender: FDA-Public Use
  Company Number: None

PATIENT
  Age: 64 Year
  Sex: Male
  Weight: 122.4712 kg

DRUGS (1)
  1. AMLODIPINE BESYLATE AND BENAZEPRIL HCL [Suspect]
     Indication: HYPERTENSION
     Dosage: 1 PER DAY PO
     Route: 048
     Dates: start: 20110107, end: 20110118

REACTIONS (3)
  - PRODUCT SUBSTITUTION ISSUE [None]
  - CHEST DISCOMFORT [None]
  - STRESS [None]
